FAERS Safety Report 5272719-4 (Version None)
Quarter: 2007Q1

REPORT INFORMATION
  Report Type: 
  Country: None (occurrence: None)
  Receive Date: 20070322
  Receipt Date: 20070313
  Transmission Date: 20070707
  Serious: Yes (Hospitalization)
  Sender: FDA-Public Use
  Company Number: CA-MERCK-0703CAN00102

PATIENT
  Age: 63 Year
  Sex: Female

DRUGS (6)
  1. COZAAR [Suspect]
     Indication: HYPERTENSION
     Route: 048
     Dates: start: 20060728, end: 20060824
  2. COZAAR [Suspect]
     Route: 048
     Dates: start: 20060825
  3. SEROQUEL [Concomitant]
     Indication: INSOMNIA
     Route: 065
     Dates: start: 20040413
  4. SIMVASTATIN [Concomitant]
     Indication: DYSLIPIDAEMIA
     Route: 065
     Dates: start: 20040413
  5. PANTOPRAZOLE SODIUM [Concomitant]
     Indication: DYSPEPSIA
     Route: 065
     Dates: start: 20060123
  6. NAPROSYN [Concomitant]
     Indication: OSTEOARTHRITIS
     Route: 065
     Dates: start: 20051010

REACTIONS (1)
  - ANKLE FRACTURE [None]
